FAERS Safety Report 7851938-4 (Version None)
Quarter: 2011Q4

REPORT INFORMATION
  Report Type: 
  Country: None (occurrence: None)
  Receive Date: 20111026
  Receipt Date: 20111013
  Transmission Date: 20120403
  Serious: Yes (Other)
  Sender: FDA-Public Use
  Company Number: GR-ELI_LILLY_AND_COMPANY-GR201109007902

PATIENT
  Age: 50 Year
  Sex: Male

DRUGS (7)
  1. STEDON [Concomitant]
     Indication: SEDATIVE THERAPY
     Dosage: 30 MG, QD
     Route: 048
  2. OLANZAPINE [Suspect]
     Indication: DEVELOPMENTAL DELAY
     Dosage: 30 MG, QD
     Route: 048
  3. OLANZAPINE [Suspect]
     Dosage: UNK
     Route: 048
  4. VITAMIN B-12 [Concomitant]
     Indication: VITAMIN B12 DEFICIENCY
     Dosage: UNK
  5. SOLIAN [Concomitant]
     Indication: PSYCHOTIC DISORDER
     Dosage: 1600 MG, QD
     Route: 048
     Dates: start: 20110301
  6. ATARAX [Concomitant]
     Indication: SEDATIVE THERAPY
     Dosage: 250 MG, QD
     Route: 048
  7. CHLORPROMAZINE HCL [Concomitant]
     Indication: PSYCHOTIC DISORDER
     Dosage: 300 MG, QD
     Route: 048

REACTIONS (5)
  - PLATELET COUNT DECREASED [None]
  - HAEMATOCRIT DECREASED [None]
  - WHITE BLOOD CELL COUNT DECREASED [None]
  - OFF LABEL USE [None]
  - OVERDOSE [None]
